FAERS Safety Report 7294203-9 (Version None)
Quarter: 2011Q1

REPORT INFORMATION
  Report Type: 
  Country: None (occurrence: None)
  Receive Date: 20110215
  Receipt Date: 20110202
  Transmission Date: 20110831
  Serious: No
  Sender: FDA-Public Use
  Company Number: US-ELI_LILLY_AND_COMPANY-US201102001688

PATIENT
  Sex: Male

DRUGS (6)
  1. ADCIRCA [Suspect]
     Indication: PULMONARY HYPERTENSION
     Dosage: 40 MG, DAILY (1/D)
     Dates: start: 20110126
  2. LASIX [Concomitant]
  3. LIPITOR [Concomitant]
  4. LANTUS [Concomitant]
  5. PRANDIN [Concomitant]
  6. WARFARIN [Concomitant]

REACTIONS (2)
  - VISION BLURRED [None]
  - PHOTOPHOBIA [None]
